FAERS Safety Report 14764591 (Version 2)
Quarter: 2018Q2

REPORT INFORMATION
  Report Type: Spontaneous
  Country: FR (occurrence: FR)
  Receive Date: 20180416
  Receipt Date: 20180424
  Transmission Date: 20180711
  Serious: Yes (Hospitalization)
  Sender: FDA-Public Use
  Company Number: FR-INDIVIOR LIMITED-INDV-110280-2018

PATIENT
  Age: 30 Year
  Sex: Male

DRUGS (9)
  1. HEROIN [Suspect]
     Active Substance: DIAMORPHINE
     Indication: PRODUCT USED FOR UNKNOWN INDICATION
     Dosage: UNK
     Route: 065
     Dates: start: 2005
  2. CANNABIS [Suspect]
     Active Substance: CANNABIS SATIVA SUBSP. INDICA TOP
     Indication: PRODUCT USED FOR UNKNOWN INDICATION
     Dosage: 5 TO 7 JOINTS PER DAY
     Route: 055
     Dates: start: 2002
  3. METHADONE AP HP [Suspect]
     Active Substance: METHADONE HYDROCHLORIDE
     Indication: PRODUCT USED FOR UNKNOWN INDICATION
     Dosage: 20 TO 40 MG DAILY
     Route: 048
  4. LSD [Suspect]
     Active Substance: LYSERGIDE
     Indication: PRODUCT USED FOR UNKNOWN INDICATION
     Dosage: UNK
     Route: 065
  5. ALCOHOL. [Suspect]
     Active Substance: ALCOHOL
     Indication: PRODUCT USED FOR UNKNOWN INDICATION
     Dosage: 18 IU/DAY
     Route: 048
     Dates: start: 2002
  6. SUBUTEX [Suspect]
     Active Substance: BUPRENORPHINE HYDROCHLORIDE
     Indication: PRODUCT USED FOR UNKNOWN INDICATION
     Dosage: UNK
     Route: 045
  7. AMPHETAMINE [Suspect]
     Active Substance: AMPHETAMINE
     Indication: PRODUCT USED FOR UNKNOWN INDICATION
     Dosage: UNK
     Route: 065
  8. COCAINE [Suspect]
     Active Substance: COCAINE
     Indication: PRODUCT USED FOR UNKNOWN INDICATION
     Dosage: UNK, 3 TIMES A WEEK
     Route: 045
     Dates: start: 2017
  9. NICOTIANA TABACUM [Suspect]
     Active Substance: TOBACCO LEAF
     Indication: PRODUCT USED FOR UNKNOWN INDICATION
     Dosage: 60G PER WEEK
     Route: 055
     Dates: start: 2005

REACTIONS (10)
  - Drug abuse [Recovering/Resolving]
  - Intentional product misuse [Recovering/Resolving]
  - Drug abuse [Recovering/Resolving]
  - Alcohol abuse [Recovering/Resolving]
  - Drug abuse [Not Recovered/Not Resolved]
  - Drug dependence [Recovering/Resolving]
  - Drug dependence [Recovering/Resolving]
  - Nasal injury [Recovering/Resolving]
  - Intentional product use issue [Unknown]
  - Drug abuser [Not Recovered/Not Resolved]

NARRATIVE: CASE EVENT DATE: 2002
